FAERS Safety Report 8536126-0 (Version None)
Quarter: 2012Q2

REPORT INFORMATION
  Report Type: 
  Country: None (occurrence: None)
  Receive Date: 20120529
  Receipt Date: 20120529
  Transmission Date: 20120825
  Serious: No
  Sender: FDA-Public Use
  Company Number: None

PATIENT
  Age: 25 Year
  Sex: Female
  Weight: 70 kg

DRUGS (1)
  1. PROSERINIUM PROSERIN YKRAINE [Suspect]

REACTIONS (2)
  - EXTRAOCULAR MUSCLE PARESIS [None]
  - MUSCULAR WEAKNESS [None]
